FAERS Safety Report 20560745 (Version 4)
Quarter: 2022Q4

REPORT INFORMATION
  Report Type: Spontaneous
  Country: FR (occurrence: FR)
  Receive Date: 20220307
  Receipt Date: 20221109
  Transmission Date: 20230112
  Serious: Yes (Hospitalization, Other)
  Sender: FDA-Public Use
  Company Number: None

PATIENT
  Age: 87 Year
  Sex: Male

DRUGS (22)
  1. ELIQUIS [Suspect]
     Active Substance: APIXABAN
     Indication: Cerebrovascular accident prophylaxis
     Dosage: 5 MILLIGRAM, DAILY
     Route: 048
  2. FERROUS SULFATE [Suspect]
     Active Substance: FERROUS SULFATE
     Indication: Iron deficiency anaemia
     Route: 048
  3. FERROUS SULFATE [Suspect]
     Active Substance: FERROUS SULFATE
     Dosage: 2 DOSAGE FORM DAILY
     Route: 048
  4. FUROSEMIDE [Suspect]
     Active Substance: FUROSEMIDE
     Indication: Hypertension
     Route: 048
  5. FUROSEMIDE [Suspect]
     Active Substance: FUROSEMIDE
     Dosage: 80 MILLIGRAM,DAILY
     Route: 048
  6. FUROSEMIDE [Suspect]
     Active Substance: FUROSEMIDE
     Dosage: 80 MILLIGRAM,DAILY
     Route: 048
  7. CORDARONE [Suspect]
     Active Substance: AMIODARONE HYDROCHLORIDE
     Indication: Atrial fibrillation
     Dosage: 5 DF, WEEKLY
     Route: 048
     Dates: start: 20210504, end: 20220217
  8. CORDARONE [Suspect]
     Active Substance: AMIODARONE HYDROCHLORIDE
  9. FOLIC ACID [Suspect]
     Active Substance: FOLIC ACID
     Indication: Folate deficiency
     Dosage: 2 DF, DAILY
     Route: 048
  10. BISOPROLOL [Suspect]
     Active Substance: BISOPROLOL
     Indication: Hypertension
     Dosage: 5 MILLIGRAM, DAILY
     Route: 048
  11. BISOPROLOL [Suspect]
     Active Substance: BISOPROLOL
  12. COMIRNATY [Suspect]
     Active Substance: TOZINAMERAN
     Indication: COVID-19 immunisation
     Dosage: DOSE 3 (BOOSTER), SINGLE
     Route: 030
     Dates: start: 20211202, end: 20211202
  13. COMIRNATY [Suspect]
     Active Substance: TOZINAMERAN
     Dosage: DOSE 1, SINGLE
     Route: 030
     Dates: start: 20210421, end: 20210421
  14. COMIRNATY [Suspect]
     Active Substance: TOZINAMERAN
     Dosage: DOSE 2, SINGLE
     Route: 030
     Dates: start: 2021, end: 2021
  15. COMIRNATY [Suspect]
     Active Substance: TOZINAMERAN
     Route: 030
     Dates: start: 20210421, end: 20211202
  16. FERROUS SULFATE [Suspect]
     Active Substance: FERROUS SULFATE
     Indication: Iron deficiency anaemia
     Dosage: 2 DOSAGE FORM, DAILY
     Route: 048
  17. FERROUS SULFATE [Suspect]
     Active Substance: FERROUS SULFATE
  18. FOLIC ACID [Suspect]
     Active Substance: FOLIC ACID
     Indication: Folate deficiency
     Dosage: 2 DOSAGE FORM, DAILY
     Route: 048
  19. CAPECITABINE [Concomitant]
     Active Substance: CAPECITABINE
     Indication: Product used for unknown indication
     Dosage: 4000 MG, 2 TIMES PER WEEK
     Route: 048
     Dates: start: 20210601, end: 20210628
  20. CAPECITABINE [Concomitant]
     Active Substance: CAPECITABINE
  21. CAPECITABINE [Concomitant]
     Active Substance: CAPECITABINE
  22. FOLIC ACID [Concomitant]
     Active Substance: FOLIC ACID
     Indication: Folate deficiency
     Dosage: 2 DOSAGE FORM, DAILY
     Route: 048

REACTIONS (2)
  - Guillain-Barre syndrome [Not Recovered/Not Resolved]
  - Axonal neuropathy [Not Recovered/Not Resolved]

NARRATIVE: CASE EVENT DATE: 20220215
